FAERS Safety Report 8212666-9 (Version None)
Quarter: 2012Q1

REPORT INFORMATION
  Report Type: 
  Country: None (occurrence: None)
  Receive Date: 20120315
  Receipt Date: 20120309
  Transmission Date: 20120608
  Serious: Yes (Hospitalization)
  Sender: FDA-Public Use
  Company Number: NL-AMGEN-NLDSP2012015689

PATIENT
  Age: 46 Year
  Sex: Female

DRUGS (8)
  1. NEULASTA [Suspect]
     Indication: CHEMOTHERAPY
  2. DOCETAXEL [Suspect]
     Indication: BREAST CANCER
     Dosage: 150 MG, UNK
     Route: 042
     Dates: start: 20111209, end: 20120210
  3. GRANISETRON [Concomitant]
  4. OMEPRAZOLE [Concomitant]
     Dosage: 40 UNK, UNK
     Dates: start: 20120120
  5. DOXORUBICIN HCL [Suspect]
     Indication: BREAST CANCER
     Dosage: 100 MG, UNK
     Route: 042
     Dates: start: 20111209, end: 20120210
  6. AMOXICILLIN [Concomitant]
     Dosage: 500 MG, QD
     Dates: start: 20120223
  7. DEXAMETHASONE [Concomitant]
  8. CYCLOPHOSPHAMIDE [Suspect]
     Indication: BREAST CANCER
     Dosage: 1000 MG, UNK
     Route: 042
     Dates: start: 20111209, end: 20120210

REACTIONS (1)
  - PYREXIA [None]
